FAERS Safety Report 7493504-9 (Version None)
Quarter: 2011Q2

REPORT INFORMATION
  Report Type: 
  Country: None (occurrence: None)
  Receive Date: 20110520
  Receipt Date: 20110517
  Transmission Date: 20111010
  Serious: Yes (Disabling, Other)
  Sender: FDA-Public Use
  Company Number: US-PFIZER INC-2011097660

PATIENT
  Sex: Female
  Weight: 61.224 kg

DRUGS (1)
  1. CHANTIX [Suspect]
     Indication: SMOKING CESSATION THERAPY
     Dosage: 0.5 MG, DAILY
     Route: 048
     Dates: start: 20110329, end: 20110429

REACTIONS (5)
  - CEREBROVASCULAR ACCIDENT [None]
  - SPEECH DISORDER [None]
  - CONVERSION DISORDER [None]
  - HYPOAESTHESIA FACIAL [None]
  - HYPOAESTHESIA [None]
